FAERS Safety Report 6039558-8 (Version None)
Quarter: 2009Q1

REPORT INFORMATION
  Report Type: 
  Country: None (occurrence: None)
  Receive Date: 20090116
  Receipt Date: 20090108
  Transmission Date: 20090719
  Serious: Yes (Hospitalization)
  Sender: FDA-Public Use
  Company Number: JP-BAYER-200813002BYL

PATIENT
  Age: 57 Year
  Sex: Male
  Weight: 64 kg

DRUGS (7)
  1. BETAFERON [Suspect]
     Indication: MULTIPLE SCLEROSIS
     Dosage: TOTAL DAILY DOSE: 8 MIU  UNIT DOSE: 9.6 MIU
     Route: 058
     Dates: start: 20050104
  2. PREDONINE [Concomitant]
     Dosage: TOTAL DAILY DOSE: 5 MG
     Route: 048
  3. IMURAN [Concomitant]
     Dosage: TOTAL DAILY DOSE: 50 MG
     Route: 048
  4. ASPIRIN [Concomitant]
     Dosage: TOTAL DAILY DOSE: 100 MG
     Route: 048
  5. OZAGREL SODIUM [Concomitant]
     Route: 065
     Dates: start: 20081029
  6. HEPARIN AND PREPARATIONS [Concomitant]
     Route: 065
     Dates: start: 20081029
  7. SOLU-MEDROL [Concomitant]
     Route: 065
     Dates: start: 20081031, end: 20081102

REACTIONS (1)
  - CEREBRAL INFARCTION [None]
